FAERS Safety Report 6344497-9 (Version None)
Quarter: 2009Q3

REPORT INFORMATION
  Report Type: 
  Country: None (occurrence: None)
  Receive Date: 20090908
  Receipt Date: 20090825
  Transmission Date: 20100115
  Serious: Yes (Death)
  Sender: FDA-Public Use
  Company Number: US-PFIZER INC-2009249679

PATIENT
  Sex: Female
  Weight: 40.369 kg

DRUGS (4)
  1. REVATIO [Suspect]
     Indication: PULMONARY HYPERTENSION
     Dosage: 20 MG, 3X/DAY
     Dates: start: 20071201
  2. REVATIO [Suspect]
     Indication: LUNG DISORDER
     Dates: start: 20071201
  3. REVATIO [Suspect]
     Indication: SARCOIDOSIS
  4. TRACLEER [Concomitant]
     Dosage: 125 MG, 2X/DAY

REACTIONS (1)
  - LUNG DISORDER [None]
